FAERS Safety Report 5296124-X (Version None)
Quarter: 2007Q2

REPORT INFORMATION
  Report Type: 
  Country: None (occurrence: None)
  Receive Date: 20070406
  Receipt Date: 20070329
  Transmission Date: 20071010
  Serious: Yes (Hospitalization)
  Sender: FDA-Public Use
  Company Number: CERZ-11546

PATIENT
  Age: 44 Year
  Sex: Female
  Weight: 52 kg

DRUGS (3)
  1. CEREZYME [Suspect]
     Indication: GAUCHER'S DISEASE
     Dates: start: 20070119, end: 20070209
  2. CEREZYME [Suspect]
  3. MORPHINE [Suspect]
     Indication: PAIN
     Dates: start: 20070215, end: 20070228

REACTIONS (5)
  - ARTHRALGIA [None]
  - DISEASE RECURRENCE [None]
  - DYSAESTHESIA [None]
  - EPISCLERITIS [None]
  - HYPOAESTHESIA [None]
